FAERS Safety Report 4674723-3 (Version None)
Quarter: 2005Q2

REPORT INFORMATION
  Report Type: 
  Country: None (occurrence: None)
  Receive Date: 20050526
  Receipt Date: 20050519
  Transmission Date: 20051028
  Serious: Yes (Hospitalization)
  Sender: FDA-Public Use
  Company Number: PHEH2005US05686

PATIENT
  Age: 59 Year
  Sex: Female
  Weight: 102 kg

DRUGS (9)
  1. DIOVAN [Suspect]
     Indication: HYPERTENSION
     Dosage: 160 MG, QD
     Route: 048
     Dates: start: 20050425
  2. DYAZIDE [Concomitant]
     Indication: HYPERTENSION
     Dosage: 37.5/25 MG DAILY
  3. ASPIRINE, BABY [Concomitant]
  4. LIPITOR /NET/ [Concomitant]
     Indication: HYPERCHOLESTEROLAEMIA
  5. ZANTAC [Concomitant]
     Indication: GASTRIC DISORDER
     Dosage: 150 MG, BID
  6. XANAX [Concomitant]
     Dosage: 1 MG, TID
  7. AYGESTIN [Concomitant]
  8. CLIMARA [Concomitant]
  9. CLARITIN [Concomitant]
     Dosage: UNK, UNK

REACTIONS (5)
  - BLOOD PRESSURE DECREASED [None]
  - CHEST PAIN [None]
  - HEADACHE [None]
  - HYPERHIDROSIS [None]
  - OEDEMA PERIPHERAL [None]
